FAERS Safety Report 7231104-6 (Version None)
Quarter: 2011Q1

REPORT INFORMATION
  Report Type: 
  Country: None (occurrence: None)
  Receive Date: 20110107
  Receipt Date: 20101223
  Transmission Date: 20110831
  Serious: Yes (Hospitalization)
  Sender: FDA-Public Use
  Company Number: AUR-APL-2010-03226

PATIENT
  Age: 30 Year
  Sex: Female

DRUGS (6)
  1. CODEINE SULFATE [Suspect]
     Indication: PRODUCT USED FOR UNKNOWN INDICATION
  2. CANNABIS [Suspect]
     Indication: DRUG ABUSE
  3. CITALOPRAM [Suspect]
     Indication: PRODUCT USED FOR UNKNOWN INDICATION
     Dosage: 20MG
  4. METHADONE [Suspect]
     Indication: PRODUCT USED FOR UNKNOWN INDICATION
     Dosage: 80MG
  5. COCAINE [Suspect]
     Indication: DRUG ABUSE
  6. HEROIN [Suspect]
     Indication: DRUG ABUSE

REACTIONS (10)
  - HYPOKALAEMIA [None]
  - ACUTE CORONARY SYNDROME [None]
  - SOMNOLENCE [None]
  - SYNCOPE [None]
  - ELECTROCARDIOGRAM ST SEGMENT ABNORMAL [None]
  - ELECTROCARDIOGRAM QT PROLONGED [None]
  - FALL [None]
  - ALANINE AMINOTRANSFERASE INCREASED [None]
  - ASPARTATE AMINOTRANSFERASE INCREASED [None]
  - GAMMA-GLUTAMYLTRANSFERASE INCREASED [None]
